FAERS Safety Report 12806036 (Version 1)
Quarter: 2016Q4

REPORT INFORMATION
  Report Type: Spontaneous
  Country: US (occurrence: US)
  Receive Date: 20161003
  Receipt Date: 20161003
  Transmission Date: 20170207
  Serious: Yes (Other)
  Sender: FDA-Public Use
  Company Number: None

PATIENT
  Age: 47 Year
  Sex: Female

DRUGS (4)
  1. LATANOPROST. [Concomitant]
     Active Substance: LATANOPROST
  2. OMEPRAZOLE. [Concomitant]
     Active Substance: OMEPRAZOLE
  3. ONDANSETRON [Concomitant]
     Active Substance: ONDANSETRON
  4. AMPYRA [Suspect]
     Active Substance: DALFAMPRIDINE
     Indication: MULTIPLE SCLEROSIS
     Route: 048
     Dates: start: 20160902

REACTIONS (7)
  - Red blood cells urine positive [None]
  - Urine analysis abnormal [None]
  - Haemoglobin urine present [None]
  - White blood cells urine positive [None]
  - Urinary sediment present [None]
  - Protein urine present [None]
  - Urine leukocyte esterase positive [None]

NARRATIVE: CASE EVENT DATE: 20160914
